FAERS Safety Report 10172928 (Version 2)
Quarter: 2014Q3

REPORT INFORMATION
  Report Type: Spontaneous
  Country: US (occurrence: US)
  Receive Date: 20140515
  Receipt Date: 20140729
  Transmission Date: 20150326
  Serious: Yes (Other)
  Sender: FDA-Public Use
  Company Number: US-JNJFOC-20140504740

PATIENT
  Age: 89 Year
  Sex: Male

DRUGS (8)
  1. COQ10 [Concomitant]
     Active Substance: UBIDECARENONE
     Route: 065
  2. SAW  PALMETTO [Concomitant]
     Active Substance: SAW PALMETTO
     Route: 065
  3. LIPITOR [Concomitant]
     Active Substance: ATORVASTATIN CALCIUM
     Indication: BLOOD CHOLESTEROL ABNORMAL
     Route: 065
  4. TOPROL XL [Concomitant]
     Active Substance: METOPROLOL SUCCINATE
     Indication: ISCHAEMIC HEART DISEASE PROPHYLAXIS
     Route: 065
  5. ISOSORBIDE [Concomitant]
     Active Substance: ISOSORBIDE
     Indication: CHEST PAIN
     Route: 065
  6. VITAMIN D [Concomitant]
     Active Substance: CHOLECALCIFEROL
     Route: 065
  7. ASPIRIN. [Concomitant]
     Active Substance: ASPIRIN
     Route: 065
  8. XARELTO [Suspect]
     Active Substance: RIVAROXABAN
     Indication: PRODUCT USED FOR UNKNOWN INDICATION
     Route: 048
     Dates: start: 20140227, end: 20140608

REACTIONS (7)
  - Cardiac pacemaker insertion [Recovered/Resolved]
  - Faeces discoloured [Recovering/Resolving]
  - Dizziness [Unknown]
  - Abnormal faeces [Unknown]
  - Pain in extremity [Unknown]
  - Asthenia [Unknown]
  - Epistaxis [Unknown]

NARRATIVE: CASE EVENT DATE: 20140524
